FAERS Safety Report 4465696-7 (Version None)
Quarter: 2004Q4

REPORT INFORMATION
  Report Type: 
  Country: None (occurrence: None)
  Receive Date: 20041004
  Receipt Date: 20040929
  Transmission Date: 20050328
  Serious: Yes (Life-Threatening, Hospitalization, Disabling)
  Sender: FDA-Public Use
  Company Number: US-MERCK-0409USA02617

PATIENT
  Age: 50 Year
  Sex: Female

DRUGS (3)
  1. PERCOCET [Concomitant]
     Route: 065
  2. PRIMAXIN [Suspect]
     Indication: APPENDICITIS PERFORATED
     Route: 042
  3. PHENERGAN [Concomitant]
     Route: 065

REACTIONS (2)
  - CONDITION AGGRAVATED [None]
  - PORPHYRIA ACUTE [None]
